FAERS Safety Report 13176531 (Version 1)
Quarter: 2017Q1

REPORT INFORMATION
  Report Type: Spontaneous
  Country: US (occurrence: US)
  Receive Date: 20170201
  Receipt Date: 20170201
  Transmission Date: 20170428
  Serious: Yes (Hospitalization)
  Sender: FDA-Public Use
  Company Number: US-ACTELION-A-US2017-148981

PATIENT
  Age: 2 Year
  Sex: Female

DRUGS (10)
  1. CETRIZINE [Concomitant]
     Active Substance: CETIRIZINE HYDROCHLORIDE
     Dosage: 2.5 ML, QHS
  2. ENALAPRIL [Concomitant]
     Active Substance: ENALAPRIL
     Dosage: 1 MG/ML, 1 ML BID
  3. TRACLEER [Suspect]
     Active Substance: BOSENTAN
     Indication: PULMONARY HYPERTENSION
     Dosage: 30.25 MG, QD
     Route: 048
     Dates: start: 20160830
  4. OMEPRAZOLE. [Concomitant]
     Active Substance: OMEPRAZOLE
     Dosage: 2 MG/ML, 4 ML BID
  5. SILDENAFIL. [Concomitant]
     Active Substance: SILDENAFIL
     Dosage: 2.5 MG/ML, QD 7 ML 4X PER DAY
     Route: 048
  6. FUROSEMIDE. [Concomitant]
     Active Substance: FUROSEMIDE
     Dosage: 10 MG/ML,(1.5 ML) TID
     Route: 048
  7. QVAR [Concomitant]
     Active Substance: BECLOMETHASONE DIPROPIONATE
     Dosage: 2 PUFFS, BID
     Route: 045
  8. MONTELUKAST [Concomitant]
     Active Substance: MONTELUKAST SODIUM
     Dosage: 4 MG, QD
  9. ASPIRIN. [Concomitant]
     Active Substance: ASPIRIN
     Dosage: 40.5 MG, QD
     Route: 048
  10. SPIRONOLACTONE. [Concomitant]
     Active Substance: SPIRONOLACTONE
     Dosage: 10 MG/ML, 1 ML QD
     Route: 048

REACTIONS (1)
  - Respiratory syncytial virus test positive [Recovering/Resolving]
